FAERS Safety Report 6750406-0 (Version None)
Quarter: 2010Q2

REPORT INFORMATION
  Report Type: 
  Country: None (occurrence: None)
  Receive Date: 20100601
  Receipt Date: 20100519
  Transmission Date: 20101027
  Serious: Yes (Other)
  Sender: FDA-Public Use
  Company Number: CA-ELI_LILLY_AND_COMPANY-CA201005005316

PATIENT
  Age: 15 Year
  Sex: Female

DRUGS (1)
  1. ZYPREXA ZYDIS [Suspect]
     Indication: PSYCHOTIC DISORDER
     Dosage: 10 MG, DAILY (1/D)
     Dates: start: 20090401, end: 20090630

REACTIONS (4)
  - BLOOD PROLACTIN INCREASED [None]
  - MEAN CELL HAEMOGLOBIN INCREASED [None]
  - NEUTROPHIL COUNT DECREASED [None]
  - OEDEMA PERIPHERAL [None]
